FAERS Safety Report 24362600 (Version 1)
Quarter: 2024Q3

REPORT INFORMATION
  Report Type: Spontaneous
  Country: FR (occurrence: FR)
  Receive Date: 20240925
  Receipt Date: 20240925
  Transmission Date: 20241017
  Serious: Yes (Life-Threatening, Hospitalization)
  Sender: FERRING
  Company Number: None

PATIENT

DRUGS (5)
  1. FIRMAGON [Suspect]
     Active Substance: DEGARELIX ACETATE
     Indication: Prostate cancer
     Dosage: 1 DOSAGE FORM, MONTHLY
     Route: 058
     Dates: start: 202406
  2. ERLEADA [Suspect]
     Active Substance: APALUTAMIDE
     Indication: Prostate cancer
     Dosage: 240 MG, 1 TIME DAILY
     Route: 048
     Dates: start: 20240621, end: 20240806
  3. HERBALS\SAW PALMETTO [Concomitant]
     Active Substance: HERBALS\SAW PALMETTO
     Indication: Prostatomegaly
     Dosage: 2 DOSAGE FORM, 1 TIME DAILY
     Route: 048
     Dates: end: 20240813
  4. ALPRAZOLAM [Concomitant]
     Active Substance: ALPRAZOLAM
     Indication: Anxiety
     Dosage: 0.25 MG, 1 TIME DAILY
     Route: 048
     Dates: end: 20240813
  5. ALFUZOSIN [Concomitant]
     Active Substance: ALFUZOSIN
     Indication: Prostatomegaly
     Dosage: 1 DOSAGE FORM, 1 TIME DAILY
     Route: 048
     Dates: end: 20240813

REACTIONS (3)
  - Septic shock [Not Recovered/Not Resolved]
  - Colitis [Not Recovered/Not Resolved]
  - Febrile bone marrow aplasia [Not Recovered/Not Resolved]

NARRATIVE: CASE EVENT DATE: 20240805
